FAERS Safety Report 8476947 (Version 9)
Quarter: 2014Q2

REPORT INFORMATION
  Report Type: Spontaneous
  Country: AU (occurrence: AU)
  Receive Date: 20120326
  Receipt Date: 20140429
  Transmission Date: 20141212
  Serious: Yes (Hospitalization)
  Sender: FDA-Public Use
  Company Number: PHHY2012AU021310

PATIENT
  Age: 57 Year
  Sex: Male

DRUGS (7)
  1. TYSABRI [Suspect]
     Indication: RELAPSING-REMITTING MULTIPLE SCLEROSIS
     Dosage: 300 MG, QMO
     Route: 042
     Dates: start: 2007, end: 20111026
  2. GILENYA [Suspect]
     Route: 048
     Dates: start: 20111205, end: 20120312
  3. ANALGESICS [Concomitant]
  4. ANTIDEPRESSANTS [Concomitant]
  5. ANXIOLYTICS [Concomitant]
  6. VITAMINS NOS [Concomitant]
  7. MINERAL SUPPLEMENTS [Concomitant]

REACTIONS (10)
  - Hemianopia homonymous [Unknown]
  - Ataxia [Unknown]
  - Pyelonephritis acute [Recovered/Resolved]
  - Progressive multifocal leukoencephalopathy [Recovered/Resolved]
  - Malaise [Recovering/Resolving]
  - Visual field defect [Recovering/Resolving]
  - Central nervous system lesion [Recovering/Resolving]
  - Muscular weakness [Unknown]
  - Anxiety [Unknown]
  - Gait disturbance [Unknown]
